FAERS Safety Report 4885504-X (Version None)
Quarter: 2005Q4

REPORT INFORMATION
  Report Type: 
  Country: None (occurrence: None)
  Receive Date: 20051220
  Receipt Date: 20041215
  Transmission Date: 20060501
  Serious: Yes (Hospitalization, Other)
  Sender: FDA-Public Use
  Company Number: HQWYE052717DEC04

PATIENT
  Age: 82 Year
  Sex: Male
  Weight: 68.1 kg

DRUGS (9)
  1. EFFEXOR XR [Suspect]
     Indication: ANXIETY
     Dosage: 112.5 MG 1X PER 1 DAY, ORAL
     Route: 048
  2. EFFEXOR XR [Suspect]
     Indication: DEPRESSION
     Dosage: 112.5 MG 1X PER 1 DAY, ORAL
     Route: 048
  3. EFFEXOR XR [Suspect]
     Indication: OBSESSIVE-COMPULSIVE DISORDER
     Dosage: 112.5 MG 1X PER 1 DAY, ORAL
     Route: 048
  4. LIPITOR [Concomitant]
  5. ASPIRIN [Concomitant]
  6. EPOGEN [Concomitant]
  7. NORVASC [Concomitant]
  8. CARDURA [Concomitant]
  9. LOPRESSOR [Concomitant]

REACTIONS (1)
  - GASTROINTESTINAL HAEMORRHAGE [None]
